FAERS Safety Report 6167834-7 (Version None)
Quarter: 2009Q2

REPORT INFORMATION
  Report Type: 
  Country: None (occurrence: None)
  Receive Date: 20090423
  Receipt Date: 20090410
  Transmission Date: 20091009
  Serious: Yes (Hospitalization)
  Sender: FDA-Public Use
  Company Number: 005479

PATIENT
  Age: 78 Year
  Sex: Male

DRUGS (3)
  1. PLETAL [Suspect]
     Indication: ARTERIOSCLEROSIS OBLITERANS
     Dosage: 100 MG, BID ORAL
     Route: 048
     Dates: start: 20080528
  2. ANTIHYPERTENSIVES UNKNOWN [Concomitant]
  3. SPIRIVA (TIOTROPIUM BROMIDE) CAPSULE [Concomitant]

REACTIONS (2)
  - ARTERIOSCLEROSIS OBLITERANS [None]
  - CONDITION AGGRAVATED [None]
